FAERS Safety Report 25531332 (Version 1)
Quarter: 2025Q3

REPORT INFORMATION
  Report Type: Spontaneous
  Country: EU (occurrence: EU)
  Receive Date: 20250708
  Receipt Date: 20250708
  Transmission Date: 20251020
  Serious: No
  Sender: BLUEPRINT MEDICINES
  Company Number: EU-Blueprint Medicines Corporation-2025-AER-01436

PATIENT
  Age: 40 Year
  Sex: Male

DRUGS (4)
  1. AVAPRITINIB [Suspect]
     Active Substance: AVAPRITINIB
     Indication: Advanced systemic mastocytosis
     Route: 065
  2. AVAPRITINIB [Suspect]
     Active Substance: AVAPRITINIB
     Route: 065
  3. OMALIZUMAB [Concomitant]
     Active Substance: OMALIZUMAB
     Indication: Advanced systemic mastocytosis
     Route: 065
  4. ZOLEDRONIC ACID [Concomitant]
     Active Substance: ZOLEDRONIC ACID
     Indication: Advanced systemic mastocytosis
     Route: 065

REACTIONS (1)
  - Tryptase increased [Unknown]
